FAERS Safety Report 25370049 (Version 2)
Quarter: 2025Q2

REPORT INFORMATION
  Report Type: Spontaneous
  Country: US (occurrence: US)
  Receive Date: 20250528
  Receipt Date: 20250626
  Transmission Date: 20250717
  Serious: No
  Sender: CALLIDITAS THERAPEUTICS AB
  Company Number: US-Calliditas-2025CAL01367

PATIENT
  Age: 79 Year
  Sex: Female

DRUGS (7)
  1. TARPEYO [Suspect]
     Active Substance: BUDESONIDE
     Indication: IgA nephropathy
     Route: 048
     Dates: start: 20250423
  2. NORVASC [Concomitant]
     Active Substance: AMLODIPINE BESYLATE
  3. MEPRON [Concomitant]
     Active Substance: ATOVAQUONE
  4. COREG [Concomitant]
     Active Substance: CARVEDILOL
  5. VITAMIN D2 [Concomitant]
     Active Substance: ERGOCALCIFEROL
  6. FENOFIBRATE [Concomitant]
     Active Substance: FENOFIBRATE
  7. FERROUS SULFATE [Concomitant]
     Active Substance: FERROUS SULFATE

REACTIONS (5)
  - Cushingoid [Recovering/Resolving]
  - Accidental overdose [Unknown]
  - Nasal congestion [Unknown]
  - Nasopharyngitis [Unknown]
  - Cough [Unknown]
